FAERS Safety Report 9962218 (Version 1)
Quarter: 2014Q1

REPORT INFORMATION
  Report Type: Report from Study
  Country: US (occurrence: US)
  Receive Date: 20140305
  Receipt Date: 20140305
  Transmission Date: 20141002
  Serious: No
  Sender: FDA-Public Use
  Company Number: US-ABBVIE-13P-163-1116170-00

PATIENT
  Age: 53 Year
  Sex: Female

DRUGS (15)
  1. HUMIRA [Suspect]
     Indication: CROHN^S DISEASE
     Dates: start: 20130603
  2. HUMIRA [Suspect]
     Dates: start: 20130617
  3. HUMIRA [Suspect]
  4. TRICOR [Concomitant]
     Indication: BLOOD TRIGLYCERIDES
     Dosage: 145 MG ONCE DAILY
  5. CRESTOR [Concomitant]
     Indication: BLOOD CHOLESTEROL
     Dosage: 10 MG ONCE DAILY
  6. BABY ASPIRIN [Concomitant]
     Indication: VISUAL IMPAIRMENT
     Dosage: 4 TABS ONCE DAILY
  7. EFFEXOR [Concomitant]
     Indication: DEPRESSION
     Dosage: 150 MG ONCE DAILY
  8. BUSPAR [Concomitant]
     Dosage: 5 MG ONCE DAILY
  9. SLOW-MAG [Concomitant]
     Indication: MINERAL SUPPLEMENTATION
     Dosage: 2 TABS ONCE DAILY
  10. POTASSIUM [Concomitant]
     Indication: MINERAL SUPPLEMENTATION
     Dosage: 20 MEQ ONCE DAILY
  11. TOPROL [Concomitant]
     Indication: HEART RATE INCREASED
  12. PRILOSEC [Concomitant]
     Indication: GASTRIC ULCER
     Dosage: 40 MG ONCE DAILY
  13. VITAMIN D NOS [Concomitant]
     Indication: VITAMIN SUPPLEMENTATION
     Dosage: 5000 UNITS ONCE DAILY
  14. SODIUM BICARBONATE [Concomitant]
     Indication: SUPPLEMENTATION THERAPY
     Dosage: 1 TAB ONCE DAILY
  15. GLYBURIDE [Concomitant]
     Indication: DIABETES MELLITUS
     Dosage: 2 MG EVERYDAY

REACTIONS (2)
  - Hyperhidrosis [Not Recovered/Not Resolved]
  - Nausea [Not Recovered/Not Resolved]
